FAERS Safety Report 7794983-X (Version None)
Quarter: 2011Q4

REPORT INFORMATION
  Report Type: 
  Country: None (occurrence: None)
  Receive Date: 20111004
  Receipt Date: 20110929
  Transmission Date: 20120403
  Serious: Yes (Hospitalization, Other)
  Sender: FDA-Public Use
  Company Number: PHHY2011US20718

PATIENT
  Sex: Male

DRUGS (8)
  1. EXJADE [Suspect]
     Indication: APLASTIC ANAEMIA
     Dosage: 1500 MG, QD
     Route: 048
  2. CYCLOSPORINE [Concomitant]
     Indication: APLASTIC ANAEMIA
     Dates: start: 20100101
  3. FLUCONAZOLE [Concomitant]
     Indication: APLASTIC ANAEMIA
     Dates: start: 20100101
  4. PENTAMIDINE [Concomitant]
     Indication: APLASTIC ANAEMIA
     Dates: start: 20100101
  5. NEXIUM [Concomitant]
     Route: 048
     Dates: start: 20100101
  6. EXJADE [Suspect]
     Indication: IRON OVERLOAD
     Dosage: 1500 MG, QD
     Route: 048
     Dates: start: 20101101
  7. CIPROFLOXACIN [Concomitant]
     Indication: APLASTIC ANAEMIA
     Dates: start: 20100101
  8. NEXIUM [Concomitant]
     Route: 048
     Dates: start: 20100101

REACTIONS (9)
  - PANCREATITIS [None]
  - NASOPHARYNGITIS [None]
  - BLOOD BILIRUBIN INCREASED [None]
  - HYPERBILIRUBINAEMIA [None]
  - TRANSFUSION REACTION [None]
  - BLOOD AMYLASE INCREASED [None]
  - CHOLELITHIASIS [None]
  - PYREXIA [None]
  - LIPASE INCREASED [None]
